FAERS Safety Report 11345678 (Version 2)
Quarter: 2015Q3

REPORT INFORMATION
  Report Type: Spontaneous
  Country: US (occurrence: IT)
  Receive Date: 20150806
  Receipt Date: 20150819
  Transmission Date: 20151125
  Serious: No
  Sender: FDA-Public Use
  Company Number: IT-FRI-1000078658

PATIENT
  Sex: Female

DRUGS (6)
  1. LYRICA [Concomitant]
     Active Substance: PREGABALIN
  2. TEGRETOL [Concomitant]
     Active Substance: CARBAMAZEPINE
     Dosage: 800 MG
  3. PROZAC [Concomitant]
     Active Substance: FLUOXETINE HYDROCHLORIDE
     Dates: end: 20150714
  4. RIVOTRIL [Concomitant]
     Active Substance: CLONAZEPAM
  5. ASENAPINE [Suspect]
     Active Substance: ASENAPINE
     Indication: BIPOLAR II DISORDER
     Route: 065
     Dates: start: 20150309, end: 20150714
  6. ASENAPINE [Suspect]
     Active Substance: ASENAPINE
     Indication: BORDERLINE PERSONALITY DISORDER

REACTIONS (10)
  - Paraesthesia [Recovered/Resolved]
  - Dysphagia [Recovered/Resolved]
  - Paraesthesia [Recovered/Resolved]
  - Glossodynia [Recovered/Resolved]
  - Dysphagia [Recovered/Resolved]
  - Off label use [Recovered/Resolved]
  - Glossodynia [Recovered/Resolved]
  - Swollen tongue [Recovered/Resolved]
  - Swollen tongue [Recovered/Resolved]
  - Dystonia [Recovered/Resolved]

NARRATIVE: CASE EVENT DATE: 20150712
